FAERS Safety Report 9589663 (Version 1)
Quarter: 2013Q4

REPORT INFORMATION
  Report Type: Spontaneous
  Country: US (occurrence: US)
  Receive Date: 20131003
  Receipt Date: 20131003
  Transmission Date: 20140711
  Serious: No
  Sender: FDA-Public Use
  Company Number: US-AMGEN-USASP2012071492

PATIENT
  Age: 72 Year
  Sex: Female

DRUGS (15)
  1. ENBREL [Suspect]
     Indication: RHEUMATOID ARTHRITIS
     Dosage: 50 MG, QWK
     Route: 058
     Dates: end: 201203
  2. CELEBREX [Concomitant]
     Dosage: 100 MG, UNK
  3. PREDNISONE [Concomitant]
     Dosage: 1 MG, UNK
  4. NEXIUM                             /01479302/ [Concomitant]
     Dosage: 20 MG, UNK
  5. EVISTA [Concomitant]
     Dosage: 60 MG, UNK
  6. VALIUM                             /00017001/ [Concomitant]
     Dosage: 2 MG, UNK
  7. FLUTICASONE [Concomitant]
     Dosage: 50 MUG, UNK
  8. FEXOFENADINE [Concomitant]
     Dosage: 30 MG, UNK
  9. LIPITOR [Concomitant]
     Dosage: 10 MG, UNK
  10. RANITIDINE [Concomitant]
     Dosage: 75 MG, UNK
  11. TRAMADOL [Concomitant]
     Dosage: 50 MG, UNK
  12. MULTIVITAMINS, PLAIN [Concomitant]
     Dosage: UNK
  13. CALCIUM 500+D [Concomitant]
     Dosage: UNK
  14. VITAMIN D                          /00107901/ [Concomitant]
     Dosage: 400 UNK, UNK
  15. VITAMIN B-12 [Concomitant]
     Dosage: 1000 MUG, UNK

REACTIONS (1)
  - Cellulitis [Unknown]
